FAERS Safety Report 9587969 (Version 4)
Quarter: 2014Q2

REPORT INFORMATION
  Report Type: Report from Study
  Country: US (occurrence: US)
  Receive Date: 20131003
  Receipt Date: 20140421
  Transmission Date: 20141212
  Serious: Yes (Hospitalization, Disabling, Other)
  Sender: FDA-Public Use
  Company Number: PHEH2013US020362

PATIENT
  Age: 48 Year
  Sex: Female

DRUGS (8)
  1. GILENYA [Suspect]
     Indication: MULTIPLE SCLEROSIS
     Dosage: 0.5 MG, DAILY
     Route: 048
     Dates: start: 20111027, end: 20130703
  2. OXYCONTIN [Concomitant]
  3. LISINOPRIL [Concomitant]
  4. ASPIRIN [Concomitant]
  5. VIIBRYD [Concomitant]
  6. VITAMIN D [Concomitant]
  7. FISH OIL [Concomitant]
  8. IBUPROFEN [Concomitant]
     Dosage: 800 MG, UNK

REACTIONS (9)
  - Thalamic infarction [Recovered/Resolved with Sequelae]
  - Sensory loss [Unknown]
  - Motor dysfunction [Unknown]
  - Dizziness [Unknown]
  - Balance disorder [Unknown]
  - Gait disturbance [Unknown]
  - Confusional state [Unknown]
  - Central pain syndrome [Unknown]
  - Dysaesthesia [Unknown]
